FAERS Safety Report 4738548-2 (Version None)
Quarter: 2005Q3

REPORT INFORMATION
  Report Type: 
  Country: None (occurrence: None)
  Receive Date: 20050803
  Receipt Date: 20050720
  Transmission Date: 20060218
  Serious: Yes (Life-Threatening)
  Sender: FDA-Public Use
  Company Number: S05-FRA-02623-01

PATIENT
  Age: 78 Year
  Sex: Male

DRUGS (7)
  1. CITALOPRAM HYDROBROMIDE [Suspect]
     Indication: DEPRESSION
     Dosage: 40 MG QD PO
     Route: 048
     Dates: start: 20050613, end: 20050623
  2. GLUCOPHAGE [Concomitant]
  3. NIFEDIPINE [Concomitant]
  4. ALLOPURINOL [Concomitant]
  5. COAPROVEL [Concomitant]
  6. LOPRESSOR [Concomitant]
  7. XANAX [Concomitant]

REACTIONS (6)
  - ACCIDENTAL OVERDOSE [None]
  - CONFUSIONAL STATE [None]
  - DYSARTHRIA [None]
  - FALL [None]
  - INAPPROPRIATE ANTIDIURETIC HORMONE SECRETION [None]
  - SOMNOLENCE [None]
